FAERS Safety Report 24988429 (Version 4)
Quarter: 2025Q2

REPORT INFORMATION
  Report Type: Report from Study
  Country: US (occurrence: US)
  Receive Date: 20250220
  Receipt Date: 20250509
  Transmission Date: 20250716
  Serious: Yes (Hospitalization)
  Sender: ACADIA PHARMACEUTICALS
  Company Number: US-ACADIA PHARMACEUTICALS INC.-ACA-2025-TRF-001271

PATIENT
  Sex: Female
  Weight: 23.5 kg

DRUGS (2)
  1. DAYBUE [Suspect]
     Active Substance: TROFINETIDE
     Indication: Rett syndrome
     Dosage: 3 MILLILITER, BID
  2. DAYBUE [Suspect]
     Active Substance: TROFINETIDE
     Dosage: 7 MILLILITER, BID
     Route: 048
     Dates: end: 20250415

REACTIONS (6)
  - Vomiting [Unknown]
  - Diarrhoea [Unknown]
  - Retching [Not Recovered/Not Resolved]
  - Dyspepsia [Not Recovered/Not Resolved]
  - Weight decreased [Unknown]
  - Prescribed underdose [Not Recovered/Not Resolved]
